FAERS Safety Report 15107407 (Version 1)
Quarter: 2018Q3

REPORT INFORMATION
  Report Type: Spontaneous
  Country: DE (occurrence: DE)
  Receive Date: 20180704
  Receipt Date: 20180704
  Transmission Date: 20181010
  Serious: Yes (Other)
  Sender: FDA-Public Use
  Company Number: DE-ASTRAZENECA-2018SE83678

PATIENT
  Age: 62 Year
  Sex: Male
  Weight: 121 kg

DRUGS (9)
  1. FUROSEMIDE. [Concomitant]
     Active Substance: FUROSEMIDE
     Indication: HYPERTENSION
     Dosage: 40.0MG UNKNOWN
     Route: 048
     Dates: start: 2009
  2. SPIRONOLACTONE. [Concomitant]
     Active Substance: SPIRONOLACTONE
     Indication: HYPERTENSION
     Dosage: 25.0MG UNKNOWN
     Route: 048
     Dates: start: 201706, end: 20180601
  3. NEPRESOL [Concomitant]
     Indication: HYPERTENSION
     Route: 048
     Dates: start: 2008
  4. JANUMET [Concomitant]
     Active Substance: METFORMIN HYDROCHLORIDE\SITAGLIPTIN PHOSPHATE
     Indication: TYPE 2 DIABETES MELLITUS
     Dosage: 2X50/1000MG
     Route: 048
     Dates: start: 2009
  5. CLONIDINE. [Concomitant]
     Active Substance: CLONIDINE
     Dosage: 250 UG PER INHALATION
     Dates: start: 201711
  6. ENALAPRIL [Concomitant]
     Active Substance: ENALAPRIL
     Indication: HYPERTENSION
     Route: 048
     Dates: start: 2004
  7. FORXIGA [Suspect]
     Active Substance: DAPAGLIFLOZIN
     Indication: TYPE 2 DIABETES MELLITUS
     Dosage: 10.0MG UNKNOWN
     Route: 048
     Dates: start: 20180419, end: 20180601
  8. LIPIDIL ? TEG [Concomitant]
     Indication: LIPID METABOLISM DISORDER
     Dosage: 160.0MG UNKNOWN
     Route: 048
     Dates: start: 2015
  9. ASPIRIN. [Concomitant]
     Active Substance: ASPIRIN
     Indication: PERIPHERAL ARTERIAL OCCLUSIVE DISEASE
     Dosage: 100.0MG UNKNOWN
     Route: 048
     Dates: start: 2013

REACTIONS (3)
  - Cardiovascular disorder [Recovering/Resolving]
  - Malaise [Recovering/Resolving]
  - Acute kidney injury [Recovering/Resolving]

NARRATIVE: CASE EVENT DATE: 20180530
